FAERS Safety Report 14427466 (Version 2)
Quarter: 2019Q1

REPORT INFORMATION
  Report Type: Spontaneous
  Country: US (occurrence: US)
  Receive Date: 20180123
  Receipt Date: 20190303
  Transmission Date: 20190417
  Serious: No
  Sender: FDA-Public Use
  Company Number: US-IMPAX LABORATORIES, INC-2017-IPXL-03650

PATIENT
  Age: 60 Year
  Sex: Male
  Weight: 112 kg

DRUGS (18)
  1. RYTARY [Suspect]
     Active Substance: CARBIDOPA\LEVODOPA
     Indication: PARKINSON^S DISEASE
     Dosage: 36.25/145 MG, ONE CAPSULE THREE TIMES A DAY
     Route: 048
     Dates: start: 201705
  2. SUPER B COMPLEX [Concomitant]
     Active Substance: CYANOCOBALAMIN\DEXPANTHENOL\NIACINAMIDE\PYRIDOXINE HYDROCHLORIDE\RIBOFLAVIN 5^-PHOSPHATE SODIUM\THIAMINE HYDROCHLORIDE\VITAMIN B COMPLEX
     Indication: VITAMIN SUPPLEMENTATION
     Dosage: 1 DF, QD, (WITH 100 MCG BIOTIN)
     Route: 048
     Dates: start: 201601
  3. VITAMIN B12 [Concomitant]
     Active Substance: CYANOCOBALAMIN
     Indication: VITAMIN SUPPLEMENTATION
     Dosage: 1 MG, QD
     Route: 060
     Dates: start: 201704
  4. OMEGA 3 6 9 [Concomitant]
     Active Substance: FISH OIL
     Indication: DIET REFUSAL
     Dosage: 1600 MG, QD
     Route: 048
     Dates: start: 201604
  5. VITAMIN D2 [Concomitant]
     Active Substance: ERGOCALCIFEROL
     Indication: VITAMIN SUPPLEMENTATION
     Dosage: 50000 IU, UNK, (AS DIRECTED)
     Route: 048
     Dates: start: 201802
  6. VITAMIN E [Concomitant]
     Active Substance: .ALPHA.-TOCOPHEROL
     Indication: VITAMIN SUPPLEMENTATION
     Dosage: 1200 IU, QD
     Route: 048
     Dates: start: 201510
  7. VITAMIN C + ROSEHIP [Concomitant]
     Indication: VITAMIN SUPPLEMENTATION
     Dosage: 1000 MG, QD
     Route: 048
     Dates: start: 2015
  8. COENZYME Q10 [Concomitant]
     Active Substance: UBIDECARENONE
     Indication: DIET REFUSAL
     Dosage: 200 MG, QD
     Route: 048
     Dates: start: 201605
  9. SPIRULINA [Concomitant]
     Active Substance: SPIRULINA
     Indication: DIET REFUSAL
     Dosage: 1 DF, QD
     Route: 048
     Dates: start: 201603
  10. PROBIOTIC [Concomitant]
     Active Substance: PROBIOTICS NOS
     Indication: DIET REFUSAL
     Dosage: 1 DF, QD
     Route: 048
     Dates: start: 201604
  11. PSYLLIUM HUSK. [Concomitant]
     Active Substance: PSYLLIUM HUSK
     Indication: DIET REFUSAL
     Dosage: UNK, QD
     Route: 048
     Dates: start: 201603
  12. PSYLLIUM HUSK. [Concomitant]
     Active Substance: PSYLLIUM HUSK
     Indication: CONSTIPATION
  13. AZILECT [Concomitant]
     Active Substance: RASAGILINE MESYLATE
     Indication: PARKINSON^S DISEASE
     Dosage: 1 MG, QD
     Route: 048
     Dates: start: 20151029
  14. MAGNESIUM CHELATE [Concomitant]
     Active Substance: MAGNESIUM
     Indication: MINERAL SUPPLEMENTATION
     Dosage: 250 MG, QD
     Route: 048
     Dates: start: 201711
  15. L-METHYLFOLATE [Concomitant]
     Active Substance: LEVOMEFOLIC ACID
     Indication: VITAMIN SUPPLEMENTATION
     Dosage: 400 ?G, QD
     Route: 048
     Dates: start: 201603
  16. VITAMIN D3 [Concomitant]
     Active Substance: CHOLECALCIFEROL
     Indication: VITAMIN SUPPLEMENTATION
     Dosage: 10000 IU, QD
     Route: 048
     Dates: start: 2016
  17. MAGNESIUM CHELATE [Concomitant]
     Active Substance: MAGNESIUM
     Indication: HYPOTONIA
  18. ANDROGEL [Concomitant]
     Active Substance: TESTOSTERONE
     Indication: BLOOD TESTOSTERONE DECREASED
     Dosage: 1 %, UNK, (AS DIRECTED)
     Route: 061
     Dates: start: 201707

REACTIONS (10)
  - Abnormal dreams [Unknown]
  - Product dose omission [Unknown]
  - Paraesthesia [Not Recovered/Not Resolved]
  - Dyskinesia [Not Recovered/Not Resolved]
  - Feeling hot [Not Recovered/Not Resolved]
  - Restless legs syndrome [Not Recovered/Not Resolved]
  - On and off phenomenon [Not Recovered/Not Resolved]
  - Pain in extremity [Not Recovered/Not Resolved]
  - Anxiety [Unknown]
  - Fall [Unknown]

NARRATIVE: CASE EVENT DATE: 201705
